FAERS Safety Report 10189466 (Version 1)
Quarter: 2014Q2

REPORT INFORMATION
  Report Type: Spontaneous
  Country: MY (occurrence: MY)
  Receive Date: 20140522
  Receipt Date: 20140522
  Transmission Date: 20141212
  Serious: Yes (Death)
  Sender: FDA-Public Use
  Company Number: MY-PFIZER INC-2014140547

PATIENT
  Sex: 0

DRUGS (1)
  1. CYTOTEC [Suspect]

REACTIONS (2)
  - Off label use [Fatal]
  - Death [Fatal]
